FAERS Safety Report 8928075 (Version 2)
Quarter: 2012Q4

REPORT INFORMATION
  Report Type: 
  Country: US (occurrence: US)
  Receive Date: 20121128
  Receipt Date: 20121214
  Transmission Date: 20130627
  Serious: Yes (Death)
  Sender: FDA-Public Use
  Company Number: US-CELGENEUS-163-21880-12112880

PATIENT
  Age: 64 Year
  Sex: Male

DRUGS (1)
  1. REVLIMID [Suspect]
     Indication: CHRONIC LYMPHOID LEUKEMIA
     Dosage: 5 Milligram
     Route: 048
     Dates: start: 201210, end: 2012

REACTIONS (1)
  - Chronic lymphocytic leukaemia [Fatal]
